FAERS Safety Report 9596000 (Version 1)
Quarter: 2013Q4

REPORT INFORMATION
  Report Type: Spontaneous
  Country: GB (occurrence: GB)
  Receive Date: 20131004
  Receipt Date: 20131004
  Transmission Date: 20140711
  Serious: Yes (Other)
  Sender: FDA-Public Use
  Company Number: GB-PFIZER INC-2013283672

PATIENT
  Sex: Male

DRUGS (5)
  1. MORPHINE SULFATE [Suspect]
     Indication: PAIN
     Dosage: 60 MG, UNK
     Route: 065
     Dates: start: 201301
  2. KETOPROFEN [Suspect]
     Indication: PAIN
     Dosage: UNK
     Route: 065
     Dates: start: 201301
  3. OMEPRAZOLE [Concomitant]
     Dosage: 20 MG, UNK
  4. PARACETAMOL [Concomitant]
     Indication: PAIN
     Dosage: 500 MG, UNK
     Dates: start: 20130511
  5. ZIMOVANE [Concomitant]
     Dosage: 7.5 MG, UNK

REACTIONS (4)
  - Anxiety [Not Recovered/Not Resolved]
  - Neck pain [Not Recovered/Not Resolved]
  - Pain in extremity [Not Recovered/Not Resolved]
  - Headache [Not Recovered/Not Resolved]
